FAERS Safety Report 8019455 (Version 5)
Quarter: 2013Q3

REPORT INFORMATION
  Report Type: Spontaneous
  Country: US (occurrence: US)
  Receive Date: 20110703
  Receipt Date: 20130917
  Transmission Date: 20140515
  Serious: Yes (Hospitalization, Other)
  Sender: FDA-Public Use
  Company Number: US-ASTRAZENECA-2010SE33028

PATIENT
  Age: 51 Year
  Sex: Male

DRUGS (1)
  1. CRESTOR [Suspect]
     Route: 048

REACTIONS (21)
  - Neck injury [Unknown]
  - Intestinal obstruction [Unknown]
  - Rib fracture [Unknown]
  - Pulmonary oedema [Unknown]
  - Intestinal perforation [Unknown]
  - Pain [Unknown]
  - Convulsion [Unknown]
  - Hernia [Unknown]
  - Abdominal discomfort [Unknown]
  - Road traffic accident [Unknown]
  - Joint injury [Unknown]
  - Intervertebral disc protrusion [Unknown]
  - Diarrhoea [Unknown]
  - Drug withdrawal syndrome [Unknown]
  - Vision blurred [Not Recovered/Not Resolved]
  - Adverse event [Not Recovered/Not Resolved]
  - Malaise [Unknown]
  - Adverse event [Unknown]
  - Diarrhoea [Unknown]
  - Dizziness [Not Recovered/Not Resolved]
  - Drug dose omission [Not Recovered/Not Resolved]
